FAERS Safety Report 20484320 (Version 1)
Quarter: 2022Q1

REPORT INFORMATION
  Report Type: Spontaneous
  Country: US (occurrence: None)
  Receive Date: 20220216
  Receipt Date: 20220216
  Transmission Date: 20220423
  Serious: No
  Sender: FDA-Public Use
  Company Number: None

PATIENT
  Age: 29 Year
  Sex: Female
  Weight: 63 kg

DRUGS (1)
  1. DEXTROAMPHET SACCHARAT, AMPHET ASPARTATE, DEXTROAMPHET SULFATE AND AMP [Suspect]
     Active Substance: AMPHETAMINE ASPARTATE\AMPHETAMINE SULFATE\DEXTROAMPHETAMINE SACCHARATE\DEXTROAMPHETAMINE SULFATE
     Indication: Attention deficit hyperactivity disorder
     Dosage: FREQUENCY : TWICE A DAY;?

REACTIONS (11)
  - Product substitution issue [None]
  - Suspected product quality issue [None]
  - Chest pain [None]
  - Palpitations [None]
  - Anxiety [None]
  - Formication [None]
  - Bruxism [None]
  - Irritability [None]
  - Depressed mood [None]
  - Crying [None]
  - Pain [None]

NARRATIVE: CASE EVENT DATE: 20220207
